FAERS Safety Report 5687000-9 (Version None)
Quarter: 2008Q1

REPORT INFORMATION
  Report Type: 
  Country: None (occurrence: None)
  Receive Date: 20080328
  Receipt Date: 20070904
  Transmission Date: 20080703
  Serious: Yes (Other)
  Sender: FDA-Public Use
  Company Number: US-BAYER-US-2007-020033

PATIENT
  Age: 20 Year
  Sex: Female
  Weight: 62 kg

DRUGS (3)
  1. MIRENA [Suspect]
     Indication: CONTRACEPTION
     Route: 015
     Dates: start: 20050305
  2. MIRENA [Suspect]
     Route: 015
     Dates: start: 20051228
  3. COLACE [Concomitant]

REACTIONS (4)
  - ABDOMINAL DISCOMFORT [None]
  - CHLAMYDIAL INFECTION [None]
  - MEDICATION ERROR [None]
  - UTERINE RUPTURE [None]
